FAERS Safety Report 9521611 (Version 1)
Quarter: 2013Q3

REPORT INFORMATION
  Report Type: Spontaneous
  Country: US (occurrence: US)
  Receive Date: 20130913
  Receipt Date: 20130913
  Transmission Date: 20140515
  Serious: No
  Sender: FDA-Public Use
  Company Number: US-PFIZER INC-2013259430

PATIENT
  Age: 63 Year
  Sex: Male

DRUGS (1)
  1. INLYTA [Suspect]
     Indication: HEPATIC CANCER
     Dosage: 5 MG, UNK
     Dates: start: 20121030

REACTIONS (3)
  - Off label use [Unknown]
  - Disease progression [Unknown]
  - Hepatic cancer [Unknown]
